FAERS Safety Report 12103878 (Version 1)
Quarter: 2016Q1

REPORT INFORMATION
  Report Type: Spontaneous
  Country: BR (occurrence: BR)
  Receive Date: 20160223
  Receipt Date: 20160223
  Transmission Date: 20160526
  Serious: Yes (Other)
  Sender: FDA-Public Use
  Company Number: BR-ROCHE-1713531

PATIENT
  Age: 57 Year
  Sex: Female

DRUGS (3)
  1. XELODA [Suspect]
     Active Substance: CAPECITABINE
     Dosage: (3 IN THE MORNING AND 3 AT NIGHT)
     Route: 048
     Dates: start: 201504
  2. XELODA [Suspect]
     Active Substance: CAPECITABINE
     Indication: COLON CANCER METASTATIC
     Route: 048
     Dates: start: 201510, end: 20151120
  3. OXALIPLATIN. [Suspect]
     Active Substance: OXALIPLATIN
     Indication: COLON CANCER METASTATIC
     Route: 065
     Dates: start: 201504

REACTIONS (9)
  - Asthenia [Unknown]
  - Immunodeficiency [Recovering/Resolving]
  - Sensory disturbance [Unknown]
  - Coordination abnormal [Unknown]
  - Malaise [Unknown]
  - Platelet count decreased [Recovering/Resolving]
  - Pain in extremity [Not Recovered/Not Resolved]
  - Hypoaesthesia [Unknown]
  - Hyperplasia [Not Recovered/Not Resolved]

NARRATIVE: CASE EVENT DATE: 201504
